FAERS Safety Report 14962187 (Version 3)
Quarter: 2018Q2

REPORT INFORMATION
  Report Type: Spontaneous
  Country: BR (occurrence: BR)
  Receive Date: 20180601
  Receipt Date: 20180621
  Transmission Date: 20180711
  Serious: Yes (Death, Hospitalization)
  Sender: FDA-Public Use
  Company Number: BR-AUROBINDO-AUR-APL-2018-030097

PATIENT
  Age: 61 Year
  Sex: Male
  Weight: 90 kg

DRUGS (14)
  1. SINVASTATINA [Concomitant]
     Active Substance: SIMVASTATIN
     Indication: DYSLIPIDAEMIA
     Dosage: 40 MILLIGRAM
     Route: 048
  2. CLOPIDOGREL [Suspect]
     Active Substance: CLOPIDOGREL BISULFATE
     Indication: PLATELET AGGREGATION INHIBITION
     Dosage: 75 MILLIGRAM
     Route: 048
     Dates: start: 20180522, end: 20180526
  3. RANITIDINA                         /00550801/ [Concomitant]
     Indication: PROPHYLAXIS
     Dosage: 50 MG 8/8H
     Route: 042
     Dates: start: 20180522, end: 20180523
  4. CLONAZEPAM. [Concomitant]
     Active Substance: CLONAZEPAM
     Indication: SEDATIVE THERAPY
     Dosage: UNK
     Route: 048
     Dates: start: 20180524, end: 20180524
  5. HIDROCORTISONA                     /00028601/ [Concomitant]
     Active Substance: HYDROCORTISONE
     Indication: IODINE ALLERGY
     Dosage: 1 G BEFORE ANGIOPLASTY
     Dates: start: 20180525, end: 20180525
  6. CLOPIDOGREL [Concomitant]
     Active Substance: CLOPIDOGREL BISULFATE
     Indication: ANTIPLATELET THERAPY
     Dosage: 75 MILLIGRAM
     Route: 048
     Dates: start: 20180522, end: 20180525
  7. ENALAPRIL [Concomitant]
     Active Substance: ENALAPRIL
     Dosage: 5 MILLIGRAM 12/12 H
     Route: 048
     Dates: start: 20180525, end: 20180525
  8. ENALAPRIL [Concomitant]
     Active Substance: ENALAPRIL
     Indication: PROPHYLAXIS
     Dosage: 10 MILLIGRAM 12/12 H
     Route: 048
     Dates: start: 20180522, end: 20180524
  9. SIMETHICONE (DIMETHICONE) [Concomitant]
     Active Substance: DIMETHICONE
     Indication: ABDOMINAL DISTENSION
     Dosage: 2 MILLIGRAM
     Dates: start: 20180524, end: 20180524
  10. DEXCLORFENIRAMINA [Concomitant]
     Active Substance: DEXCHLORPHENIRAMINE
     Indication: IODINE ALLERGY
     Dosage: 2 MG 12/ 12 H BEFORE ANGIOPLASTY
     Dates: start: 20180525, end: 20180525
  11. RANITIDINA                         /00550801/ [Concomitant]
     Indication: PROPHYLAXIS
     Dosage: 50 MILLIGRAM
     Route: 042
     Dates: start: 20180525, end: 20180525
  12. ASPIRIN. [Concomitant]
     Active Substance: ASPIRIN
     Indication: ANTIPLATELET THERAPY
     Dosage: 100 MILLIGRAM
     Route: 048
     Dates: start: 20180522, end: 20180525
  13. CARVEDILOL. [Concomitant]
     Active Substance: CARVEDILOL
     Indication: PROPHYLAXIS
     Dosage: 6,25 MG 12/12 H
     Route: 048
     Dates: start: 20180522, end: 20180525
  14. OMEPRAZOLE. [Concomitant]
     Active Substance: OMEPRAZOLE
     Indication: PROPHYLAXIS
     Dosage: 20 MILLIGRAM
     Route: 048

REACTIONS (3)
  - Vascular stent thrombosis [Fatal]
  - Cardio-respiratory arrest [Unknown]
  - Loss of consciousness [Unknown]

NARRATIVE: CASE EVENT DATE: 20180526
